FAERS Safety Report 12211973 (Version 1)
Quarter: 2016Q1

REPORT INFORMATION
  Report Type: Spontaneous
  Country: EG (occurrence: EG)
  Receive Date: 20160325
  Receipt Date: 20160325
  Transmission Date: 20160526
  Serious: Yes (Life-Threatening)
  Sender: FDA-Public Use
  Company Number: EG-ASTRAZENECA-2016SE32265

PATIENT
  Age: 60 Year
  Sex: Male

DRUGS (3)
  1. CAPOTEN [Concomitant]
     Active Substance: CAPTOPRIL
     Indication: CARDIAC FAILURE CHRONIC
     Route: 048
  2. LANOXIN [Concomitant]
     Active Substance: DIGOXIN
     Indication: CARDIAC FAILURE CHRONIC
     Route: 048
  3. LOSEC [Suspect]
     Active Substance: OMEPRAZOLE
     Indication: GASTROOESOPHAGEAL REFLUX DISEASE
     Route: 048

REACTIONS (2)
  - Heart rate abnormal [Unknown]
  - Abdominal discomfort [Unknown]
